FAERS Safety Report 24754358 (Version 3)
Quarter: 2024Q4

REPORT INFORMATION
  Report Type: Spontaneous
  Country: US (occurrence: US)
  Receive Date: 20241219
  Receipt Date: 20241230
  Transmission Date: 20250115
  Serious: Yes (Other)
  Sender: PFIZER
  Company Number: US-PFIZER INC-202400327030

PATIENT
  Age: 63 Year
  Sex: Female

DRUGS (3)
  1. PREMARIN [Suspect]
     Active Substance: ESTROGENS, CONJUGATED
     Indication: Dyspareunia
     Dosage: (USED TO BE A HALF A GRAM)
     Route: 067
  2. PREMARIN [Suspect]
     Active Substance: ESTROGENS, CONJUGATED
     Indication: Atrophic vulvovaginitis
     Dosage: (NOW, IT^S ONE GRAM THAT I USE TWICE A WEEK)
     Route: 067
  3. PREMARIN [Suspect]
     Active Substance: ESTROGENS, CONJUGATED
     Indication: Sexual dysfunction

REACTIONS (5)
  - Product physical issue [Unknown]
  - Vulvovaginal dryness [Unknown]
  - Vulvovaginal injury [Unknown]
  - Off label use [Unknown]
  - Product use issue [Unknown]
